FAERS Safety Report 11888946 (Version 3)
Quarter: 2016Q1

REPORT INFORMATION
  Report Type: Spontaneous
  Country: US (occurrence: US)
  Receive Date: 20160105
  Receipt Date: 20160202
  Transmission Date: 20160526
  Serious: No
  Sender: FDA-Public Use
  Company Number: US-PFIZER INC-2015436611

PATIENT
  Age: 94 Year
  Sex: Female
  Weight: 77 kg

DRUGS (1)
  1. XALATAN [Suspect]
     Active Substance: LATANOPROST
     Indication: GLAUCOMA
     Dosage: UNK, 1X/DAY (QHS)
     Route: 061
     Dates: start: 2001

REACTIONS (3)
  - Underdose [Unknown]
  - Product container issue [Unknown]
  - Rash macular [Unknown]
